FAERS Safety Report 23983643 (Version 1)
Quarter: 2024Q2

REPORT INFORMATION
  Report Type: Spontaneous
  Country: IT (occurrence: IT)
  Receive Date: 20240618
  Receipt Date: 20240618
  Transmission Date: 20240716
  Serious: Yes (Hospitalization, Other)
  Sender: FDA-Public Use
  Company Number: None

PATIENT
  Age: 53 Year
  Sex: Female

DRUGS (2)
  1. TECFIDERA [Suspect]
     Active Substance: DIMETHYL FUMARATE
     Indication: Multiple sclerosis
     Dosage: TECFIDERA (DIMETHYLFUMARATE) 240 MG 2 TABLETS DAILY
     Route: 050
     Dates: start: 20220610
  2. TEGRETOL [Concomitant]
     Active Substance: CARBAMAZEPINE
     Indication: Seizure prophylaxis
     Dosage: IN 2001, THE PATIENT STARTED TAKING TEGRETOL 400MG 2 TABLETS DAILY. ON 23-NOV-2017 THE DOSAGE OF ...
     Route: 050
     Dates: start: 1992

REACTIONS (1)
  - Acute coronary syndrome [Recovered/Resolved with Sequelae]

NARRATIVE: CASE EVENT DATE: 20231215
